FAERS Safety Report 4609102-8 (Version None)
Quarter: 2005Q2

REPORT INFORMATION
  Report Type: 
  Country: None (occurrence: None)
  Receive Date: 20050301
  Receipt Date: 20040323
  Transmission Date: 20051028
  Serious: Yes (Disabling)
  Sender: FDA-Public Use
  Company Number: 20040300245

PATIENT
  Sex: Male

DRUGS (2)
  1. METOCLOPRAMIDE (NON-BAXTER) [Suspect]
     Indication: GASTROOESOPHAGEAL REFLUX DISEASE
     Dates: start: 20020501, end: 20021219
  2. METOCLOPRAMIDE (NON-BAXTER) [Suspect]
     Indication: GASTROOESOPHAGEAL REFLUX DISEASE
     Dates: start: 20010924, end: 20040430

REACTIONS (1)
  - DYSKINESIA [None]
